FAERS Safety Report 6584816-1 (Version None)
Quarter: 2010Q1

REPORT INFORMATION
  Report Type: 
  Country: None (occurrence: None)
  Receive Date: 20100217
  Receipt Date: 20090423
  Transmission Date: 20100710
  Serious: Yes (Hospitalization, Disabling)
  Sender: FDA-Public Use
  Company Number: US-JNJFOC-20090204233

PATIENT
  Sex: Female

DRUGS (3)
  1. LEVAQUIN [Suspect]
     Indication: LUNG INFECTION
  2. HYDROCODEIN [Suspect]
     Indication: DRUG USE FOR UNKNOWN INDICATION
     Route: 065
  3. STEROIDS NOS [Suspect]
     Indication: DRUG USE FOR UNKNOWN INDICATION
     Route: 065

REACTIONS (8)
  - ANXIETY [None]
  - DEPRESSION [None]
  - IMMOBILE [None]
  - MUSCULOSKELETAL DISORDER [None]
  - NEUROPATHY PERIPHERAL [None]
  - PAIN [None]
  - ROTATOR CUFF SYNDROME [None]
  - TENDON RUPTURE [None]
